FAERS Safety Report 4422086-0 (Version None)
Quarter: 2004Q3

REPORT INFORMATION
  Report Type: 
  Country: None (occurrence: None)
  Receive Date: 20040805
  Receipt Date: 20040723
  Transmission Date: 20050211
  Serious: Yes (Other)
  Sender: FDA-Public Use
  Company Number: 2004050409

PATIENT
  Sex: Male
  Weight: 106.5953 kg

DRUGS (7)
  1. LIPITOR [Suspect]
     Indication: BLOOD CHOLESTEROL
     Dosage: 10 MG (1 IN 1 D), ORAL
     Route: 048
  2. ACETYLSALICYLIC ACID SRT [Concomitant]
  3. LEUPRORELIN ACETATE (LEUPRORELIN ACETATE) [Concomitant]
  4. LISINOPRIL [Concomitant]
  5. DYAZIDE [Concomitant]
  6. METOPROLOL SUCCINATE [Concomitant]
  7. VITAMINS (VITAMINS) [Concomitant]

REACTIONS (5)
  - CORONARY ARTERIAL STENT INSERTION [None]
  - DIFFICULTY IN WALKING [None]
  - MUSCLE FATIGUE [None]
  - MYALGIA [None]
  - PROSTATE CANCER [None]
